FAERS Safety Report 16115804 (Version 1)
Quarter: 2019Q1

REPORT INFORMATION
  Report Type: Spontaneous
  Country: GB (occurrence: GB)
  Receive Date: 20190326
  Receipt Date: 20190326
  Transmission Date: 20190418
  Serious: Yes (Hospitalization, Other)
  Sender: FDA-Public Use
  Company Number: GB-TEVA-2019-GB-1027515

PATIENT
  Age: 36 Year
  Sex: Female

DRUGS (1)
  1. NORETHINDRONE. [Suspect]
     Active Substance: NORETHINDRONE
     Indication: MENSTRUAL CYCLE MANAGEMENT
     Route: 048
     Dates: start: 20170706

REACTIONS (19)
  - Neoplasm progression [Recovering/Resolving]
  - Blood count abnormal [Recovering/Resolving]
  - Neoplasm [Recovering/Resolving]
  - Abdominal pain [Recovering/Resolving]
  - Impaired work ability [Recovering/Resolving]
  - Adnexa uteri pain [Recovering/Resolving]
  - Abdominal distension [Recovering/Resolving]
  - Haemoglobin decreased [Recovering/Resolving]
  - Uterine leiomyoma [Recovering/Resolving]
  - General physical health deterioration [Recovering/Resolving]
  - Gait disturbance [Recovering/Resolving]
  - Abdominal mass [Recovering/Resolving]
  - Dysstasia [Recovering/Resolving]
  - Iron deficiency anaemia [Recovering/Resolving]
  - Ovarian cyst [Recovering/Resolving]
  - Vomiting [Recovering/Resolving]
  - Psychological trauma [Recovering/Resolving]
  - Uterine haemorrhage [Recovering/Resolving]
  - Ill-defined disorder [Recovering/Resolving]

NARRATIVE: CASE EVENT DATE: 20181011
